FAERS Safety Report 5120250-9 (Version None)
Quarter: 2006Q3

REPORT INFORMATION
  Report Type: 
  Country: None (occurrence: None)
  Receive Date: 20060928
  Receipt Date: 20060915
  Transmission Date: 20061208
  Serious: Yes (Other)
  Sender: FDA-Public Use
  Company Number: 2006113079

PATIENT
  Sex: Female

DRUGS (2)
  1. PHENYTOIN [Suspect]
     Dosage: 16 YEARS -
  2. ATORVASTATIN (ATORVASTATIN) [Suspect]

REACTIONS (2)
  - ALANINE AMINOTRANSFERASE INCREASED [None]
  - GAMMA-GLUTAMYLTRANSFERASE DECREASED [None]
